FAERS Safety Report 11389596 (Version 2)
Quarter: 2015Q3

REPORT INFORMATION
  Report Type: Spontaneous
  Country: AU (occurrence: AU)
  Receive Date: 20150817
  Receipt Date: 20150827
  Transmission Date: 20151125
  Serious: Yes (Hospitalization, Other)
  Sender: FDA-Public Use
  Company Number: AU-ABBVIE-15P-008-1443802-00

PATIENT
  Sex: Male

DRUGS (13)
  1. TRUVADA [Suspect]
     Active Substance: EMTRICITABINE\TENOFOVIR DISOPROXIL FUMARATE
     Indication: PRODUCT USED FOR UNKNOWN INDICATION
     Route: 065
     Dates: start: 2006
  2. LAMIVUDINE. [Suspect]
     Active Substance: LAMIVUDINE
     Indication: PRODUCT USED FOR UNKNOWN INDICATION
     Route: 065
  3. NEVIRAPINE. [Suspect]
     Active Substance: NEVIRAPINE
     Indication: PRODUCT USED FOR UNKNOWN INDICATION
     Route: 065
     Dates: start: 2010
  4. DARUNAVIR [Suspect]
     Active Substance: DARUNAVIR
     Indication: PRODUCT USED FOR UNKNOWN INDICATION
     Route: 065
  5. NORVIR [Suspect]
     Active Substance: RITONAVIR
     Route: 048
  6. TIVICAY [Suspect]
     Active Substance: DOLUTEGRAVIR SODIUM
     Indication: PRODUCT USED FOR UNKNOWN INDICATION
     Route: 065
  7. NORVIR [Suspect]
     Active Substance: RITONAVIR
     Route: 048
  8. NORVIR [Suspect]
     Active Substance: RITONAVIR
     Indication: PRODUCT USED FOR UNKNOWN INDICATION
     Route: 048
     Dates: start: 2006
  9. TRUVADA [Suspect]
     Active Substance: EMTRICITABINE\TENOFOVIR DISOPROXIL FUMARATE
     Route: 065
     Dates: start: 2010
  10. ATAZANAVIR SULFATE [Suspect]
     Active Substance: ATAZANAVIR SULFATE
     Indication: PRODUCT USED FOR UNKNOWN INDICATION
     Route: 065
     Dates: start: 2006
  11. CARBAMAZEPINE. [Suspect]
     Active Substance: CARBAMAZEPINE
     Indication: PRODUCT USED FOR UNKNOWN INDICATION
     Route: 065
  12. NORVIR [Suspect]
     Active Substance: RITONAVIR
     Route: 048
  13. EMTRICITABINE W/TENOFOVIR DISOPROXIL FUMARATE [Concomitant]
     Active Substance: EMTRICITABINE\TENOFOVIR DISOPROXIL
     Indication: PRODUCT USED FOR UNKNOWN INDICATION
     Route: 065

REACTIONS (22)
  - Intentional self-injury [Unknown]
  - Toxicity to various agents [Unknown]
  - Somnolence [Unknown]
  - Aggression [Not Recovered/Not Resolved]
  - Alcohol abuse [Unknown]
  - Diarrhoea [Unknown]
  - Fall [Not Recovered/Not Resolved]
  - Osteoporosis [Unknown]
  - Depression [Unknown]
  - Chest injury [Unknown]
  - Pancreatitis [Unknown]
  - Vitamin D deficiency [Unknown]
  - Injury [Not Recovered/Not Resolved]
  - Clumsiness [Unknown]
  - Fibrosis [Unknown]
  - Asthenia [Unknown]
  - Suicidal ideation [Recovered/Resolved]
  - Stab wound [Not Recovered/Not Resolved]
  - Somnolence [Unknown]
  - Hepatic function abnormal [Unknown]
  - Ataxia [Unknown]
  - Dysgeusia [Unknown]

NARRATIVE: CASE EVENT DATE: 2011
